FAERS Safety Report 7293942-3 (Version None)
Quarter: 2011Q1

REPORT INFORMATION
  Report Type: 
  Country: None (occurrence: None)
  Receive Date: 20110204
  Receipt Date: 20110125
  Transmission Date: 20110831
  Serious: Yes (Hospitalization)
  Sender: FDA-Public Use
  Company Number: UTC-004821

PATIENT
  Age: 80 Year
  Sex: Female
  Weight: 62.7 kg

DRUGS (2)
  1. TRACLEER [Concomitant]
  2. REMODULIN [Suspect]
     Dosage: 120.96 UG/KG (0.084 UG/KG,L IN 1 MIN),SUBCUTANEOUS
     Route: 058

REACTIONS (1)
  - SEPSIS [None]
